FAERS Safety Report 23742901 (Version 1)
Quarter: 2024Q2

REPORT INFORMATION
  Report Type: Spontaneous
  Country: US (occurrence: None)
  Receive Date: 20240412
  Receipt Date: 20240412
  Transmission Date: 20240716
  Serious: Yes (Life-Threatening)
  Sender: FDA-Public Use
  Company Number: None

PATIENT
  Age: 33 Year
  Sex: Female
  Weight: 76.5 kg

DRUGS (11)
  1. SPIRONOLACTONE [Suspect]
     Active Substance: SPIRONOLACTONE
     Indication: Acne
     Dosage: FREQUENCY : AT BEDTIME;?
     Route: 048
     Dates: start: 20240203, end: 20240229
  2. ADDERALL [Concomitant]
     Active Substance: AMPHETAMINE ASPARTATE\AMPHETAMINE SULFATE\DEXTROAMPHETAMINE SACCHARATE\DEXTROAMPHETAMINE SULFATE
  3. TRIAMCINOLONE ACETONIDE [Concomitant]
     Active Substance: TRIAMCINOLONE ACETONIDE
  4. Fluocinolone acetonide  oil [Concomitant]
  5. TRETINOIN [Concomitant]
     Active Substance: TRETINOIN
  6. CLARITIN [Concomitant]
     Active Substance: LORATADINE
  7. ADVIL [Concomitant]
     Active Substance: IBUPROFEN
  8. HERBALS\WITHANIA SOMNIFERA ROOT [Concomitant]
     Active Substance: HERBALS\WITHANIA SOMNIFERA ROOT
  9. VITAMIN D [Concomitant]
     Active Substance: VITAMIN D NOS
  10. Fiber gummy [Concomitant]
  11. Multivitamin gummy [Concomitant]

REACTIONS (6)
  - Joint stiffness [None]
  - Myalgia [None]
  - Paraesthesia [None]
  - Anxiety [None]
  - Back pain [None]
  - Insomnia [None]

NARRATIVE: CASE EVENT DATE: 20240301
